FAERS Safety Report 24847426 (Version 1)
Quarter: 2025Q1

REPORT INFORMATION
  Report Type: Spontaneous
  Country: IT (occurrence: IT)
  Receive Date: 20250116
  Receipt Date: 20250116
  Transmission Date: 20250408
  Serious: Yes (Other)
  Sender: AMGEN
  Company Number: None

PATIENT
  Age: 58 Year
  Sex: Female

DRUGS (11)
  1. XGEVA [Suspect]
     Active Substance: DENOSUMAB
     Indication: Breast cancer metastatic
     Dosage: 120 MILLIGRAM, Q4WK
     Route: 058
     Dates: start: 20221020, end: 202410
  2. TRASTUZUMAB [Suspect]
     Active Substance: TRASTUZUMAB
     Indication: Breast cancer metastatic
     Route: 040
     Dates: start: 20220801, end: 20220801
  3. TRASTUZUMAB [Suspect]
     Active Substance: TRASTUZUMAB
     Route: 040
     Dates: start: 20220829, end: 20221212
  4. TRASTUZUMAB [Suspect]
     Active Substance: TRASTUZUMAB
     Route: 065
     Dates: start: 20230929
  5. ANASTROZOLE [Concomitant]
     Active Substance: ANASTROZOLE
     Indication: Breast cancer metastatic
     Route: 048
  6. PERTUZUMAB [Concomitant]
     Active Substance: PERTUZUMAB
     Indication: Metaplastic breast carcinoma
     Dates: start: 20220801, end: 20221212
  7. ENHERTU [Concomitant]
     Active Substance: FAM-TRASTUZUMAB DERUXTECAN-NXKI
     Indication: Metaplastic breast carcinoma
     Route: 040
     Dates: start: 20230120, end: 20230907
  8. ENHERTU [Concomitant]
     Active Substance: FAM-TRASTUZUMAB DERUXTECAN-NXKI
     Route: 065
     Dates: start: 20230121, end: 20240907
  9. DEXAMETHASONE [Concomitant]
     Active Substance: DEXAMETHASONE
     Route: 048
     Dates: start: 2022
  10. TUCATINIB [Concomitant]
     Active Substance: TUCATINIB
     Indication: Breast cancer metastatic
     Route: 048
  11. CAPECITABINE [Concomitant]
     Active Substance: CAPECITABINE
     Indication: Breast cancer
     Route: 048

REACTIONS (2)
  - Osteonecrosis of jaw [Not Recovered/Not Resolved]
  - Off label use [Unknown]

NARRATIVE: CASE EVENT DATE: 20220801
